FAERS Safety Report 8530342-X (Version None)
Quarter: 2012Q3

REPORT INFORMATION
  Report Type: 
  Country: None (occurrence: None)
  Receive Date: 20120711
  Receipt Date: 20120705
  Transmission Date: 20120928
  Serious: Yes (Other)
  Sender: FDA-Public Use
  Company Number: 2012060120

PATIENT
  Age: 19 Year
  Sex: Male
  Weight: 68.0396 kg

DRUGS (8)
  1. RISPERDAL [Concomitant]
  2. CLONIDINE [Concomitant]
  3. ZONISAMIDE [Concomitant]
  4. FELBATOL [Suspect]
     Indication: EPILEPSY
     Dosage: 600 MG/5 ML (10 MG, 3 IN 1 D), ORAL, 600 MG/5 ML (10 MILLILITER, 3 IN 1 D), ORAL
     Route: 048
     Dates: start: 19980101, end: 20120619
  5. FELBATOL [Suspect]
     Indication: EPILEPSY
     Dosage: 600 MG/5 ML (10 MG, 3 IN 1 D), ORAL, 600 MG/5 ML (10 MILLILITER, 3 IN 1 D), ORAL
     Route: 048
     Dates: start: 20120101
  6. PROZAC [Concomitant]
  7. CLONAZEPAM [Concomitant]
  8. LAMOTRIGINE [Concomitant]

REACTIONS (1)
  - DRUG WITHDRAWAL CONVULSIONS [None]
